FAERS Safety Report 11230217 (Version 1)
Quarter: 2015Q2

REPORT INFORMATION
  Report Type: Spontaneous
  Country: US (occurrence: None)
  Receive Date: 20150629
  Receipt Date: 20150629
  Transmission Date: 20150821
  Serious: No
  Sender: FDA-Public Use
  Company Number: None

PATIENT
  Sex: Female

DRUGS (7)
  1. SPIRONOLACT [Concomitant]
  2. FENTANYL. [Concomitant]
     Active Substance: FENTANYL
  3. ANASTROZOLE. [Concomitant]
     Active Substance: ANASTROZOLE
  4. RAMIPRIL. [Concomitant]
     Active Substance: RAMIPRIL
  5. CARVEDILOL. [Concomitant]
     Active Substance: CARVEDILOL
  6. IBRANCE [Suspect]
     Active Substance: PALBOCICLIB
     Indication: MALIGNANT NIPPLE NEOPLASM
     Dosage: 75MG DAILY FOR 21 DAYS ORAL
     Route: 048
     Dates: start: 20150609
  7. AMOXICILLIN. [Concomitant]
     Active Substance: AMOXICILLIN

REACTIONS (3)
  - Arthralgia [None]
  - Nausea [None]
  - Vomiting [None]
